FAERS Safety Report 6416223 (Version 12)
Quarter: 2014Q3

REPORT INFORMATION
  Report Type: Spontaneous
  Country: US (occurrence: US)
  Receive Date: 20070918
  Receipt Date: 20140819
  Transmission Date: 20150326
  Serious: Yes (Death, Hospitalization, Other)
  Sender: FDA-Public Use
  Company Number: PHEH2007US12139

PATIENT
  Age: 59 Year
  Sex: Male

DRUGS (29)
  1. STEROIDS NOS [Concomitant]
     Active Substance: UNSPECIFIED INGREDIENT
  2. ZOMETA [Suspect]
     Active Substance: ZOLEDRONIC ACID
     Dosage: 4 MG, QMO
     Dates: start: 20020606, end: 20021226
  3. VITAMIN B6 [Concomitant]
     Active Substance: PYRIDOXINE HYDROCHLORIDE
  4. CHEMOTHERAPEUTICS NOS [Concomitant]
     Active Substance: UNSPECIFIED INGREDIENT
  5. ZOSYN [Concomitant]
     Active Substance: PIPERACILLIN SODIUM\TAZOBACTAM SODIUM
  6. BENADRYL ^ACHE^ [Concomitant]
     Active Substance: DIPHENHYDRAMINE HYDROCHLORIDE
  7. ROXICODONE [Concomitant]
     Active Substance: OXYCODONE HYDROCHLORIDE
  8. ZOMETA [Suspect]
     Active Substance: ZOLEDRONIC ACID
     Dosage: 1 MG, QMO
     Route: 041
     Dates: start: 20030123, end: 20060505
  9. PERDIX [Concomitant]
     Dates: start: 20060607
  10. FAMVIR                                  /NET/ [Concomitant]
  11. NEXIUM [Concomitant]
     Active Substance: ESOMEPRAZOLE MAGNESIUM
  12. DESYREL [Concomitant]
     Active Substance: TRAZODONE HYDROCHLORIDE
  13. SYNTHROID [Concomitant]
     Active Substance: LEVOTHYROXINE SODIUM
  14. LOMOTIL [Concomitant]
     Active Substance: ATROPINE SULFATE\DIPHENOXYLATE HYDROCHLORIDE
  15. ZOFRAN [Concomitant]
     Active Substance: ONDANSETRON HYDROCHLORIDE
  16. DECADRON [Suspect]
     Active Substance: DEXAMETHASONE
     Dosage: UNK UKN, UNK
  17. THALIDOMIDE [Concomitant]
     Active Substance: THALIDOMIDE
  18. ARANESP [Concomitant]
     Active Substance: DARBEPOETIN ALFA
  19. PREDNISONE. [Concomitant]
     Active Substance: PREDNISONE
  20. VICODIN [Concomitant]
     Active Substance: ACETAMINOPHEN\HYDROCODONE BITARTRATE
     Dates: start: 20060712
  21. TRAZODONE [Concomitant]
     Active Substance: TRAZODONE HYDROCHLORIDE
  22. SONATA [Concomitant]
     Active Substance: ZALEPLON
  23. K-DUR [Concomitant]
     Active Substance: POTASSIUM CHLORIDE
  24. REVLIMID [Concomitant]
     Active Substance: LENALIDOMIDE
  25. AREDIA [Suspect]
     Active Substance: PAMIDRONATE DISODIUM
     Dosage: 30 MG, QMO
     Route: 041
     Dates: start: 20000727, end: 20020502
  26. DELTASONE [Concomitant]
     Active Substance: PREDNISONE
  27. KLOR-CON [Concomitant]
     Active Substance: POTASSIUM CHLORIDE
  28. TYLENOL EXTRA STRENGTH [Concomitant]
     Active Substance: ACETAMINOPHEN
  29. POTASSIUM [Concomitant]
     Active Substance: POTASSIUM

REACTIONS (94)
  - Mental status changes [Unknown]
  - Deformity [Unknown]
  - Emotional distress [Unknown]
  - Anxiety [Unknown]
  - Hypoaesthesia [Unknown]
  - Back pain [Unknown]
  - Flat affect [Unknown]
  - Rash [Unknown]
  - Epistaxis [Unknown]
  - Depression [Unknown]
  - Lymphoma [Unknown]
  - Granuloma [Unknown]
  - Abscess [Unknown]
  - Anaemia [Unknown]
  - Pancytopenia [Fatal]
  - Neutropenic sepsis [Unknown]
  - Pseudomonas infection [Unknown]
  - Hypokalaemia [Unknown]
  - Pneumonia [Unknown]
  - Hypothyroidism [Unknown]
  - Bone fragmentation [Unknown]
  - Hypomagnesaemia [Unknown]
  - Neuropathy peripheral [Unknown]
  - Bone pain [Unknown]
  - Erythema [Unknown]
  - Flank pain [Unknown]
  - Stomatitis [Unknown]
  - Nocturia [Unknown]
  - Malnutrition [Unknown]
  - Infection [Unknown]
  - Compression fracture [Unknown]
  - Joint swelling [Unknown]
  - Abdominal distension [Unknown]
  - Metastases to bone [Unknown]
  - Spondylolisthesis [Unknown]
  - Haematoma [Unknown]
  - Arthralgia [Unknown]
  - Lethargy [Unknown]
  - Renal failure [Unknown]
  - Hypoxia [Unknown]
  - Leukopenia [Unknown]
  - Balance disorder [Unknown]
  - Impaired healing [Unknown]
  - Pleuritic pain [Unknown]
  - Pleural effusion [Unknown]
  - Oropharyngeal pain [Unknown]
  - Sinus tachycardia [Unknown]
  - Atelectasis [Unknown]
  - Fatigue [Unknown]
  - Tooth fracture [Unknown]
  - Toothache [Unknown]
  - Petechiae [Unknown]
  - Oral herpes [Unknown]
  - Syncope [Unknown]
  - Oedema peripheral [Unknown]
  - Decreased appetite [Unknown]
  - Cough [Unknown]
  - Plasma cell myeloma [Fatal]
  - Osteonecrosis of jaw [Unknown]
  - Pain [Unknown]
  - Cellulitis [Unknown]
  - Joint stiffness [Unknown]
  - Cervical spinal stenosis [Unknown]
  - Nodule [Unknown]
  - Trigger finger [Unknown]
  - Sepsis [Unknown]
  - Localised infection [Unknown]
  - Febrile neutropenia [Unknown]
  - Diarrhoea [Unknown]
  - Plasmacytoma [Fatal]
  - Bone disorder [Unknown]
  - Disability [Unknown]
  - Dyspnoea [Unknown]
  - Paraesthesia [Unknown]
  - Gait disturbance [Unknown]
  - Mass [Unknown]
  - Dermatitis [Unknown]
  - Oral disorder [Unknown]
  - Periodontitis [Unknown]
  - Dehydration [Unknown]
  - Abdominal pain [Unknown]
  - Hypotension [Unknown]
  - Hyperthermia [Unknown]
  - Pyrexia [Unknown]
  - Confusional state [Unknown]
  - Asthenia [Unknown]
  - Metastatic malignant melanoma [Unknown]
  - Spinal osteoarthritis [Unknown]
  - Cardiomegaly [Unknown]
  - Pollakiuria [Unknown]
  - Movement disorder [Unknown]
  - Dysphoria [Unknown]
  - Polydipsia [Unknown]
  - Thrombocytopenia [Unknown]

NARRATIVE: CASE EVENT DATE: 20050729
